FAERS Safety Report 7901182-7 (Version None)
Quarter: 2011Q4

REPORT INFORMATION
  Report Type: 
  Country: None (occurrence: None)
  Receive Date: 20111108
  Receipt Date: 20111025
  Transmission Date: 20120403
  Serious: Yes (Other)
  Sender: FDA-Public Use
  Company Number: US-ELI_LILLY_AND_COMPANY-US201109006534

PATIENT
  Sex: Female

DRUGS (8)
  1. CITRICAL [Concomitant]
     Dosage: UNK, QD
  2. FORTEO [Suspect]
     Indication: OSTEOPOROSIS
     Dosage: 20 UG, QD
     Dates: start: 20110701
  3. FISH OIL [Concomitant]
     Dosage: UNK, QD
  4. METOPROLOL [Concomitant]
     Dosage: UNK, QD
  5. LIPITOR [Concomitant]
     Dosage: UNK, QD
  6. SINEMET [Concomitant]
     Dosage: UNK, QD
  7. STALEVO 100 [Concomitant]
     Dosage: UNK, QD
  8. REQUIP [Concomitant]
     Dosage: UNK, QD

REACTIONS (6)
  - BONE SWELLING [None]
  - REHABILITATION THERAPY [None]
  - HAND FRACTURE [None]
  - PAIN [None]
  - FALL [None]
  - BONE PAIN [None]
